FAERS Safety Report 7272752 (Version 4)
Quarter: 2013Q3

REPORT INFORMATION
  Report Type: Spontaneous
  Country: US (occurrence: US)
  Receive Date: 20100208
  Receipt Date: 20130924
  Transmission Date: 20140515
  Serious: Yes (Other)
  Sender: FDA-Public Use
  Company Number: US-JNJFOC-20100111085

PATIENT
  Age: 38 Year
  Sex: Male

DRUGS (1)
  1. NUCYNTA [Suspect]
     Indication: PAIN
     Dosage: 1-2 TABLETS EVERY 6 HOURS, AS NEEDED
     Route: 048
     Dates: start: 201001, end: 201001

REACTIONS (2)
  - Aggression [Recovered/Resolved]
  - Hallucination [Recovered/Resolved]
